FAERS Safety Report 20402051 (Version 1)
Quarter: 2022Q1

REPORT INFORMATION
  Report Type: Spontaneous
  Country: US (occurrence: US)
  Receive Date: 20220131
  Receipt Date: 20220131
  Transmission Date: 20220424
  Serious: No
  Sender: FDA-Public Use
  Company Number: US-APOTEX-2022AP002477

PATIENT
  Age: 11 Year
  Sex: Male

DRUGS (1)
  1. OLANZAPINE [Suspect]
     Active Substance: OLANZAPINE
     Indication: Tourette^s disorder
     Dosage: UNK
     Route: 065

REACTIONS (2)
  - Chorea [Unknown]
  - Drug withdrawal syndrome [Unknown]
